FAERS Safety Report 8334417-X (Version None)
Quarter: 2012Q2

REPORT INFORMATION
  Report Type: 
  Country: None (occurrence: None)
  Receive Date: 20120503
  Receipt Date: 20110415
  Transmission Date: 20120825
  Serious: No
  Sender: FDA-Public Use
  Company Number: US-BAUSCH-2011BL002511

PATIENT
  Age: 39 Year
  Sex: Male

DRUGS (1)
  1. LOTEMAX [Suspect]
     Indication: KERATOMILEUSIS
     Route: 047
     Dates: start: 20110412, end: 20110413

REACTIONS (1)
  - BLEPHAROSPASM [None]
